FAERS Safety Report 14819304 (Version 1)
Quarter: 2018Q2

REPORT INFORMATION
  Report Type: Spontaneous
  Country: CH (occurrence: CH)
  Receive Date: 20180427
  Receipt Date: 20180427
  Transmission Date: 20180711
  Serious: Yes (Hospitalization)
  Sender: FDA-Public Use
  Company Number: CH-BAYER-2018-074402

PATIENT
  Age: 63 Year
  Sex: Male

DRUGS (1)
  1. BETAFERON [Suspect]
     Active Substance: INTERFERON BETA-1B
     Indication: MULTIPLE SCLEROSIS
     Dosage: 250 ?G, QOD
     Route: 058
     Dates: start: 20080801

REACTIONS (1)
  - Spinal column stenosis [Recovering/Resolving]

NARRATIVE: CASE EVENT DATE: 2017
